FAERS Safety Report 8541610-X (Version None)
Quarter: 2012Q3

REPORT INFORMATION
  Report Type: 
  Country: None (occurrence: None)
  Receive Date: 20120726
  Receipt Date: 20120717
  Transmission Date: 20120928
  Serious: Yes (Other)
  Sender: FDA-Public Use
  Company Number: JP-ROCHE-802028

PATIENT
  Sex: Male

DRUGS (16)
  1. DIOVAN [Concomitant]
     Route: 048
     Dates: start: 20110219, end: 20110818
  2. ONEALFA [Concomitant]
     Indication: RENAL DISORDER
     Route: 048
     Dates: start: 20111022
  3. MEDROL [Concomitant]
     Route: 048
     Dates: start: 20101106, end: 20101121
  4. ACTEMRA [Suspect]
     Indication: CASTLEMAN'S DISEASE
     Route: 041
     Dates: start: 20101208, end: 20101208
  5. ACTEMRA [Suspect]
     Route: 041
     Dates: start: 20101224, end: 20110805
  6. MEDROL [Concomitant]
     Route: 048
     Dates: start: 20100703, end: 20100708
  7. MEDROL [Concomitant]
     Route: 048
     Dates: start: 20100709, end: 20100722
  8. MEDROL [Concomitant]
     Route: 048
     Dates: start: 20100723, end: 20101105
  9. DIOVAN [Concomitant]
     Route: 048
     Dates: start: 20110204, end: 20110218
  10. MEDROL [Concomitant]
     Indication: CASTLEMAN'S DISEASE
     Route: 048
     Dates: start: 20100626, end: 20100702
  11. ALFAROL [Concomitant]
     Indication: RENAL DISORDER
     Route: 048
     Dates: start: 20101224, end: 20110821
  12. RASILEZ [Concomitant]
     Route: 048
     Dates: start: 20111203
  13. MEDROL [Concomitant]
     Dosage: IT IS A WEIGHT LOSS TO 28MG-24MG-20MG-16MG-12MG-8MG (8 PRESENT MG).
     Route: 048
     Dates: start: 20101122, end: 20110501
  14. MEDROL [Concomitant]
     Route: 048
  15. COMELIAN [Concomitant]
     Indication: CASTLEMAN'S DISEASE
     Route: 048
     Dates: start: 20111111
  16. ALLOPURINOL [Concomitant]
     Route: 048
     Dates: start: 20110806

REACTIONS (3)
  - ANAPHYLACTIC SHOCK [None]
  - DERMATITIS ALLERGIC [None]
  - SHOCK [None]
